FAERS Safety Report 4390644-8 (Version None)
Quarter: 2004Q2

REPORT INFORMATION
  Report Type: 
  Country: None (occurrence: None)
  Receive Date: 20040630
  Receipt Date: 20040621
  Transmission Date: 20050107
  Serious: Yes (Hospitalization)
  Sender: FDA-Public Use
  Company Number: 200412865BCC

PATIENT
  Age: 56 Year
  Sex: Female
  Weight: 65.7716 kg

DRUGS (5)
  1. ALEVE [Suspect]
     Indication: ARTHRITIS
     Dosage: 220 MG, BID, ORAL
     Route: 048
     Dates: start: 20040401, end: 20040517
  2. ALEVE [Suspect]
     Indication: PAIN
     Dosage: 220 MG, BID, ORAL
     Route: 048
     Dates: start: 20040401, end: 20040517
  3. DETROL [Concomitant]
  4. EVISTA [Concomitant]
  5. TYLENOL [Concomitant]

REACTIONS (7)
  - ARTERIAL RUPTURE [None]
  - CONTUSION [None]
  - DIZZINESS [None]
  - EPISTAXIS [None]
  - HAEMOPTYSIS [None]
  - SKIN ATROPHY [None]
  - THROMBOSIS [None]
